FAERS Safety Report 23472223 (Version 1)
Quarter: 2024Q1

REPORT INFORMATION
  Report Type: Spontaneous
  Country: US (occurrence: None)
  Receive Date: 20240202
  Receipt Date: 20240202
  Transmission Date: 20240410
  Serious: Yes (Other)
  Sender: FDA-Public Use
  Company Number: None

PATIENT
  Age: 77 Year
  Sex: Male
  Weight: 78.5 kg

DRUGS (1)
  1. MONOFERRIC [Suspect]
     Active Substance: FERRIC DERISOMALTOSE
     Indication: Iron deficiency anaemia
     Route: 041
     Dates: start: 20231003, end: 20231003

REACTIONS (3)
  - Back pain [None]
  - Infusion related reaction [None]
  - Heart rate decreased [None]

NARRATIVE: CASE EVENT DATE: 20231003
